FAERS Safety Report 5025987-8 (Version None)
Quarter: 2006Q2

REPORT INFORMATION
  Report Type: 
  Country: None (occurrence: None)
  Receive Date: 20060614
  Receipt Date: 20060602
  Transmission Date: 20061013
  Serious: Yes (Death, Other)
  Sender: FDA-Public Use
  Company Number: KR-BRISTOL-MYERS SQUIBB COMPANY-13407598

PATIENT
  Age: 52 Year
  Sex: Male

DRUGS (6)
  1. CISPLATIN [Suspect]
     Indication: GASTRIC CANCER
  2. ETOPOSIDE [Suspect]
     Indication: GASTRIC CANCER
  3. TAXOL [Suspect]
     Indication: GASTRIC CANCER
     Route: 042
  4. IFOSFAMIDE [Suspect]
     Indication: GASTRIC CANCER
  5. MESNA [Suspect]
     Indication: GASTRIC CANCER
  6. IRINOTECAN [Suspect]
     Indication: GASTRIC CANCER

REACTIONS (8)
  - ABDOMINAL PAIN UPPER [None]
  - ANAEMIA [None]
  - DIARRHOEA [None]
  - FEBRILE NEUTROPENIA [None]
  - MALIGNANT NEOPLASM PROGRESSION [None]
  - NEUROPATHY PERIPHERAL [None]
  - NEUTROPENIA [None]
  - PNEUMONIA STREPTOCOCCAL [None]
